FAERS Safety Report 7200677-1 (Version None)
Quarter: 2010Q4

REPORT INFORMATION
  Report Type: 
  Country: None (occurrence: None)
  Receive Date: 20101215
  Receipt Date: 20101208
  Transmission Date: 20110411
  Serious: Yes (Other)
  Sender: FDA-Public Use
  Company Number: TPA2010A05062

PATIENT
  Age: 74 Year
  Sex: Male

DRUGS (5)
  1. ACTOS [Suspect]
     Indication: DIABETES MELLITUS
     Dosage: 30 MG, PER ORAL
     Route: 048
     Dates: end: 20100701
  2. ZETIA [Concomitant]
  3. COZAAR [Concomitant]
  4. METFORMIN HCL [Concomitant]
  5. ZOCOR [Concomitant]

REACTIONS (1)
  - BLADDER CANCER [None]
